FAERS Safety Report 15659629 (Version 1)
Quarter: 2018Q4

REPORT INFORMATION
  Report Type: Spontaneous
  Country: US (occurrence: US)
  Receive Date: 20181127
  Receipt Date: 20181127
  Transmission Date: 20190205
  Serious: No
  Sender: FDA-Public Use
  Company Number: US-HIKMA PHARMACEUTICALS USA INC.-US-H14001-18-07288

PATIENT
  Age: 67 Year
  Sex: Female

DRUGS (3)
  1. DESVENLAFAXINE EXTENDED RELEASE TABLET [Suspect]
     Active Substance: DESVENLAFAXINE SUCCINATE
     Indication: NEURALGIA
  2. DESVENLAFAXINE EXTENDED RELEASE TABLET [Suspect]
     Active Substance: DESVENLAFAXINE SUCCINATE
     Indication: DEPRESSION
     Route: 048
     Dates: start: 201806
  3. DESVENLAFAXINE EXTENDED RELEASE TABLET [Suspect]
     Active Substance: DESVENLAFAXINE SUCCINATE
     Indication: ANXIETY
     Route: 048
     Dates: start: 2018

REACTIONS (4)
  - Abdominal distension [Unknown]
  - Weight increased [Unknown]
  - Off label use [Unknown]
  - Hyperhidrosis [Unknown]

NARRATIVE: CASE EVENT DATE: 201806
